FAERS Safety Report 13199545 (Version 2)
Quarter: 2017Q1

REPORT INFORMATION
  Report Type: Spontaneous
  Country: US (occurrence: US)
  Receive Date: 20170208
  Receipt Date: 20170301
  Transmission Date: 20170428
  Serious: Yes (Other)
  Sender: FDA-Public Use
  Company Number: US-BAYER-2017-024433

PATIENT
  Age: 40 Year
  Sex: Female

DRUGS (1)
  1. MIRENA [Suspect]
     Active Substance: LEVONORGESTREL
     Indication: CONTRACEPTION
     Dosage: 20 MCG/24HR, CONT
     Route: 015
     Dates: start: 20170203

REACTIONS (6)
  - Fear of pregnancy [None]
  - Procedural pain [Recovered/Resolved]
  - Breast pain [None]
  - Genital haemorrhage [None]
  - Breast tenderness [None]
  - Anxiety [None]

NARRATIVE: CASE EVENT DATE: 201702
